FAERS Safety Report 21142210 (Version 1)
Quarter: 2022Q3

REPORT INFORMATION
  Report Type: Spontaneous
  Country: US (occurrence: None)
  Receive Date: 20220727
  Receipt Date: 20220727
  Transmission Date: 20221027
  Serious: Yes (Life-Threatening, Disabling)
  Sender: FDA-Public Use
  Company Number: None

PATIENT
  Age: 41 Year
  Sex: Female
  Weight: 67.05 kg

DRUGS (9)
  1. METRONIDAZOLE [Suspect]
     Active Substance: METRONIDAZOLE
     Indication: Pelvic inflammatory disease
     Dosage: OTHER QUANTITY : 28 TABLET(S);?FREQUENCY : TWICE A DAY;?
     Route: 048
     Dates: start: 20220713, end: 20220725
  2. WARFARIN [Concomitant]
     Active Substance: WARFARIN
  3. TOPIRAMATE [Concomitant]
     Active Substance: TOPIRAMATE
  4. elatriptan [Concomitant]
  5. NORCO [Concomitant]
     Active Substance: ACETAMINOPHEN\HYDROCODONE BITARTRATE
  6. ZOLPIDEM [Concomitant]
     Active Substance: ZOLPIDEM TARTRATE
  7. daily women multivitamin [Concomitant]
  8. antarctic krill + dha [Concomitant]
  9. VITAMIN D3 [Concomitant]
     Active Substance: CHOLECALCIFEROL

REACTIONS (7)
  - Toxic encephalopathy [None]
  - Dizziness [None]
  - Nausea [None]
  - Vertigo [None]
  - Ataxia [None]
  - Dysarthria [None]
  - Nystagmus [None]

NARRATIVE: CASE EVENT DATE: 20220725
